FAERS Safety Report 9618532 (Version 2)
Quarter: 2013Q4

REPORT INFORMATION
  Report Type: Spontaneous
  Country: US (occurrence: US)
  Receive Date: 20131014
  Receipt Date: 20131028
  Transmission Date: 20140711
  Serious: No
  Sender: FDA-Public Use
  Company Number: US-PFIZER INC-2013292197

PATIENT
  Age: 35 Year
  Sex: Male
  Weight: 104 kg

DRUGS (4)
  1. LYRICA [Suspect]
     Indication: EPILEPSY
     Dosage: 150 MG, 2X/DAY
     Dates: start: 20130919
  2. LYRICA [Suspect]
     Indication: CONVULSION
  3. VIMPAT [Concomitant]
     Indication: EPILEPSY
     Dosage: 200 MG, DAILY
  4. KEPPRA [Concomitant]
     Indication: EPILEPSY
     Dosage: 1000 MG, 2X/DAY

REACTIONS (1)
  - Weight increased [Unknown]
